FAERS Safety Report 11662282 (Version 3)
Quarter: 2017Q2

REPORT INFORMATION
  Report Type: Report from Study
  Country: US (occurrence: US)
  Receive Date: 20151027
  Receipt Date: 20170530
  Transmission Date: 20170829
  Serious: Yes (Hospitalization, Disabling, Other)
  Sender: FDA-Public Use
  Company Number: US-AMGEN-USASL2015111580

PATIENT
  Age: 49 Year
  Sex: Male
  Weight: 71.2 kg

DRUGS (2)
  1. ENBREL [Suspect]
     Active Substance: ETANERCEPT
     Dosage: 50 MG, QWK
     Route: 065
     Dates: end: 20150830
  2. ENBREL [Suspect]
     Active Substance: ETANERCEPT
     Indication: RHEUMATOID ARTHRITIS
     Dosage: 50 MG, QWK
     Route: 065
     Dates: start: 2011, end: 2015

REACTIONS (13)
  - Road traffic accident [Unknown]
  - Apparent death [Unknown]
  - Aspiration [Recovered/Resolved]
  - Drooling [Unknown]
  - Injection site erythema [Unknown]
  - Generalised tonic-clonic seizure [Unknown]
  - Rheumatoid arthritis [Unknown]
  - Disability [Unknown]
  - Epilepsy [Unknown]
  - Seizure [Recovering/Resolving]
  - Amnesia [Unknown]
  - Liver disorder [Unknown]
  - Focal dyscognitive seizures [Unknown]

NARRATIVE: CASE EVENT DATE: 2011
